FAERS Safety Report 17988830 (Version 8)
Quarter: 2024Q1

REPORT INFORMATION
  Report Type: Spontaneous
  Country: US (occurrence: US)
  Receive Date: 20200707
  Receipt Date: 20240301
  Transmission Date: 20240410
  Serious: Yes (Other)
  Sender: FDA-Public Use
  Company Number: US-PFIZER INC-2020259256

PATIENT
  Age: 74 Year
  Sex: Female

DRUGS (5)
  1. INLYTA [Suspect]
     Active Substance: AXITINIB
     Indication: Anticoagulant therapy
     Dosage: 5 MG
  2. INLYTA [Suspect]
     Active Substance: AXITINIB
     Dosage: 2 MG, 2X/DAY
     Route: 048
  3. INLYTA [Suspect]
     Active Substance: AXITINIB
     Dosage: 2 MG, DAILY
     Route: 048
  4. INLYTA [Suspect]
     Active Substance: AXITINIB
     Dosage: 2 MG PO (PER ORAL) BID (TWICE A DAY)
     Route: 048
  5. INLYTA [Suspect]
     Active Substance: AXITINIB
     Dosage: 6 MG

REACTIONS (3)
  - Device related infection [Unknown]
  - Off label use [Unknown]
  - Product prescribing error [Unknown]
